FAERS Safety Report 25451053 (Version 3)
Quarter: 2025Q3

REPORT INFORMATION
  Report Type: Spontaneous
  Country: US (occurrence: US)
  Receive Date: 20250618
  Receipt Date: 20250708
  Transmission Date: 20251020
  Serious: Yes (Life-Threatening, Hospitalization)
  Sender: PFIZER
  Company Number: US-PFIZER INC-202500121434

PATIENT
  Age: 76 Year
  Sex: Female
  Weight: 82.6 kg

DRUGS (24)
  1. RETACRIT [Suspect]
     Active Substance: EPOETIN ALFA-EPBX
     Indication: Anaemia
     Route: 042
     Dates: start: 20250603, end: 20250603
  2. RETACRIT [Suspect]
     Active Substance: EPOETIN ALFA-EPBX
     Route: 042
     Dates: start: 20250610, end: 20250610
  3. RETACRIT [Suspect]
     Active Substance: EPOETIN ALFA-EPBX
     Route: 042
     Dates: start: 20250611, end: 20250614
  4. RETACRIT [Suspect]
     Active Substance: EPOETIN ALFA-EPBX
     Route: 042
     Dates: start: 20250614, end: 20250615
  5. EPOGEN [Suspect]
     Active Substance: ERYTHROPOIETIN
     Indication: Anaemia
     Route: 042
     Dates: start: 20250603, end: 20250603
  6. EPOGEN [Suspect]
     Active Substance: ERYTHROPOIETIN
     Route: 042
     Dates: start: 20250610, end: 20250610
  7. EPOGEN [Suspect]
     Active Substance: ERYTHROPOIETIN
     Route: 042
     Dates: start: 20250611, end: 20250614
  8. EPOGEN [Suspect]
     Active Substance: ERYTHROPOIETIN
     Route: 042
     Dates: start: 20250614, end: 20250615
  9. ZYRTEC [Concomitant]
     Active Substance: CETIRIZINE HYDROCHLORIDE
     Indication: Premedication
     Route: 048
     Dates: start: 20250610, end: 20250610
  10. PEPCID [Concomitant]
     Active Substance: FAMOTIDINE
     Indication: Premedication
     Route: 048
     Dates: start: 20250610, end: 20250610
  11. SENOKOT [Concomitant]
     Active Substance: SENNOSIDES
     Indication: Diarrhoea
     Route: 048
     Dates: start: 20250611, end: 20250611
  12. SENOKOT [Concomitant]
     Active Substance: SENNOSIDES
     Route: 048
     Dates: start: 20250612, end: 20250618
  13. ZOFRAN [Concomitant]
     Active Substance: ONDANSETRON HYDROCHLORIDE
     Indication: Nausea
     Route: 042
     Dates: start: 20250611, end: 20250611
  14. MS CONTIN [Concomitant]
     Active Substance: MORPHINE SULFATE
     Indication: Pain
     Route: 048
     Dates: start: 20250611, end: 20250611
  15. CLARITIN [Concomitant]
     Active Substance: LORATADINE
     Indication: Antiallergic therapy
     Route: 048
     Dates: start: 20250611, end: 20250611
  16. LIDOCAINE HYDROCHLORIDE [Concomitant]
     Active Substance: LIDOCAINE HYDROCHLORIDE
     Indication: Pain
     Route: 061
     Dates: start: 20250611, end: 20250611
  17. DILAUDID [Concomitant]
     Active Substance: HYDROMORPHONE HYDROCHLORIDE
     Indication: Pain
     Route: 048
     Dates: start: 20250611, end: 20250611
  18. DILAUDID [Concomitant]
     Active Substance: HYDROMORPHONE HYDROCHLORIDE
     Indication: Pain
     Route: 042
     Dates: start: 20250611, end: 20250611
  19. PROCHLORPERAZINE EDISYLATE [Concomitant]
     Active Substance: PROCHLORPERAZINE EDISYLATE
     Indication: Nausea
     Route: 042
     Dates: start: 20250612, end: 20250612
  20. PROCHLORPERAZINE EDISYLATE [Concomitant]
     Active Substance: PROCHLORPERAZINE EDISYLATE
     Indication: Vomiting
  21. MIRALAX [Concomitant]
     Active Substance: POLYETHYLENE GLYCOL 3350
     Indication: Diarrhoea
     Route: 048
     Dates: start: 20250612, end: 20250618
  22. CYANOCOBALAMIN [Concomitant]
     Active Substance: CYANOCOBALAMIN
     Indication: Anaemia
     Route: 048
     Dates: start: 20250613, end: 20250618
  23. VENOFER [Concomitant]
     Active Substance: IRON SUCROSE
     Indication: Anaemia
     Route: 042
     Dates: start: 20250611, end: 20250612
  24. NEURONTIN [Concomitant]
     Active Substance: GABAPENTIN
     Indication: Pain
     Route: 048
     Dates: start: 20250611, end: 20250618

REACTIONS (1)
  - Anaemia [Recovered/Resolved]

NARRATIVE: CASE EVENT DATE: 20250610
